FAERS Safety Report 7122098-2 (Version None)
Quarter: 2010Q4

REPORT INFORMATION
  Report Type: 
  Country: None (occurrence: None)
  Receive Date: 20101122
  Receipt Date: 20101122
  Transmission Date: 20110411
  Serious: No
  Sender: FDA-Public Use
  Company Number: None

PATIENT
  Age: 60 Year
  Sex: Male

DRUGS (1)
  1. WARFARIN [Suspect]
     Indication: DEEP VEIN THROMBOSIS
     Dates: start: 20101004, end: 20101024

REACTIONS (4)
  - APHASIA [None]
  - DYSARTHRIA [None]
  - HAEMORRHAGE [None]
  - SUBDURAL HAEMORRHAGE [None]
